FAERS Safety Report 23410284 (Version 1)
Quarter: 2024Q1

REPORT INFORMATION
  Report Type: Report from Study
  Country: GB (occurrence: GB)
  Receive Date: 20240117
  Receipt Date: 20240117
  Transmission Date: 20240410
  Serious: Yes (Other)
  Sender: FDA-Public Use
  Company Number: GB-ABBVIE-5365169

PATIENT
  Age: 59 Year
  Sex: Male

DRUGS (4)
  1. CARBIDOPA\LEVODOPA [Suspect]
     Active Substance: CARBIDOPA\LEVODOPA
     Indication: Parkinson^s disease
     Dosage: MD 9.0MLS, CR 4.2MLS, ED 2.0MLS, 20MGS/5MGS
     Route: 050
     Dates: end: 2023
  2. CARBIDOPA\LEVODOPA [Suspect]
     Active Substance: CARBIDOPA\LEVODOPA
     Dosage: MD 9.0MLS, CR 4.4MLS, ED 2.0MLS, 20MGS/5MGS
     Route: 050
     Dates: start: 2023
  3. BENSERAZIDE HYDROCHLORIDE\LEVODOPA [Concomitant]
     Active Substance: BENSERAZIDE HYDROCHLORIDE\LEVODOPA
     Indication: Product used for unknown indication
  4. SINEMET [Concomitant]
     Active Substance: CARBIDOPA\LEVODOPA
     Indication: Product used for unknown indication
     Dosage: TIME INTERVAL: 0.33333333 DAYS: 25/100MG?FREQUENCY TEXT: X4 ON

REACTIONS (13)
  - Blood iron decreased [Unknown]
  - Diarrhoea [Recovered/Resolved]
  - Abnormal dreams [Unknown]
  - Weight decreased [Recovered/Resolved]
  - Dyskinesia [Recovering/Resolving]
  - Muscle rigidity [Unknown]
  - Malaise [Unknown]
  - Dizziness [Unknown]
  - Headache [Unknown]
  - Poor quality sleep [Unknown]
  - Nausea [Unknown]
  - Fatigue [Unknown]
  - Depressed mood [Unknown]

NARRATIVE: CASE EVENT DATE: 20230101
